FAERS Safety Report 7130426-7 (Version None)
Quarter: 2010Q4

REPORT INFORMATION
  Report Type: 
  Country: None (occurrence: None)
  Receive Date: 20101201
  Receipt Date: 20100423
  Transmission Date: 20110411
  Serious: Yes (Hospitalization)
  Sender: FDA-Public Use
  Company Number: GB-ASTRAZENECA-2010SE16670

PATIENT
  Age: 74 Year
  Sex: Male

DRUGS (7)
  1. OMEPRAZOLE [Suspect]
     Route: 048
     Dates: start: 20100326
  2. CALCIUM [Concomitant]
  3. PREDNISOLONE [Concomitant]
     Indication: EALES' DISEASE
  4. TRUSOPT [Concomitant]
     Indication: GLAUCOMA
     Dosage: ONCE A DAY
  5. TIMOLOL MALEATE [Concomitant]
     Indication: GLAUCOMA
     Dosage: ONCE DAILY
  6. LATANOPROST [Concomitant]
     Indication: GLAUCOMA
     Dosage: ONCE DAILY
  7. CALCICHEW D3 [Concomitant]
     Dosage: ONCE DAILY
     Route: 048

REACTIONS (2)
  - HEPATITIS [None]
  - MALAISE [None]
